FAERS Safety Report 6940104-2 (Version None)
Quarter: 2010Q3

REPORT INFORMATION
  Report Type: 
  Country: None (occurrence: None)
  Receive Date: 20100825
  Receipt Date: 20100818
  Transmission Date: 20110219
  Serious: Yes (Hospitalization)
  Sender: FDA-Public Use
  Company Number: BR-US-EMD SERONO, INC.-7014845

PATIENT
  Sex: Female

DRUGS (4)
  1. REBIF [Suspect]
     Indication: PRODUCT USED FOR UNKNOWN INDICATION
     Route: 058
     Dates: start: 20090601
  2. CITALOPRAM HYDROBROMIDE [Concomitant]
  3. PAMELOR [Concomitant]
  4. OXCARBAZEPINE [Concomitant]

REACTIONS (2)
  - ASTHENIA [None]
  - PAIN IN EXTREMITY [None]
